FAERS Safety Report 9007501 (Version 1)
Quarter: 2013Q1

REPORT INFORMATION
  Report Type: Spontaneous
  Country: US (occurrence: US)
  Receive Date: 20130111
  Receipt Date: 20130111
  Transmission Date: 20140127
  Serious: Yes (Other)
  Sender: FDA-Public Use
  Company Number: US-009507513-0909USA03233

PATIENT
  Age: 6 Year
  Sex: Female
  Weight: 16 kg

DRUGS (3)
  1. SINGULAIR [Suspect]
     Indication: ASTHMA
     Route: 048
     Dates: start: 20030222, end: 20041101
  2. SINGULAIR [Suspect]
     Route: 048
     Dates: end: 20030201
  3. ALBUTEROL [Concomitant]

REACTIONS (2)
  - Anxiety [Unknown]
  - Abdominal pain upper [Unknown]
